FAERS Safety Report 8893951 (Version 1)
Quarter: 2012Q4

REPORT INFORMATION
  Report Type: 
  Country: US (occurrence: US)
  Receive Date: 20121107
  Receipt Date: 20121107
  Transmission Date: 20130627
  Serious: No
  Sender: FDA-Public Use
  Company Number: US-AMGEN-USASP2011061947

PATIENT
  Age: 19 Year
  Sex: Female

DRUGS (2)
  1. ENBREL [Suspect]
     Indication: PSORIATIC ARTHROPATHY
     Dosage: 50 mg, UNK
     Dates: start: 20091028
  2. ENBREL [Suspect]
     Dosage: 25 mg, UNK

REACTIONS (2)
  - Dyspepsia [Unknown]
  - Heart rate increased [Unknown]
